FAERS Safety Report 4504953-2 (Version None)
Quarter: 2004Q4

REPORT INFORMATION
  Report Type: 
  Country: None (occurrence: None)
  Receive Date: 20041119
  Receipt Date: 20041110
  Transmission Date: 20050328
  Serious: Yes (Hospitalization)
  Sender: FDA-Public Use
  Company Number: US-JNJFOC-20040404263

PATIENT
  Sex: Female
  Weight: 57.61 kg

DRUGS (10)
  1. INFLIXIMAB [Suspect]
     Route: 042
  2. INFLIXIMAB [Suspect]
     Route: 042
  3. INFLIXIMAB [Suspect]
     Route: 042
  4. INFLIXIMAB [Suspect]
     Route: 042
  5. INFLIXIMAB [Suspect]
     Route: 042
  6. INFLIXIMAB [Suspect]
     Indication: CROHN'S DISEASE
     Route: 042
  7. PREDNISONE [Suspect]
     Indication: CROHN'S DISEASE
  8. NARCOTIC ANALGESICS [Suspect]
     Indication: CROHN'S DISEASE
  9. DAPSONE [Suspect]
     Indication: CROHN'S DISEASE
  10. ANTIBIOTICS [Suspect]
     Indication: CROHN'S DISEASE

REACTIONS (2)
  - ENTEROCUTANEOUS FISTULA [None]
  - VULVAL ULCERATION [None]
